FAERS Safety Report 16431671 (Version 2)
Quarter: 2019Q2

REPORT INFORMATION
  Report Type: Spontaneous
  Country: US (occurrence: US)
  Receive Date: 20190614
  Receipt Date: 20190626
  Transmission Date: 20190711
  Serious: No
  Sender: FDA-Public Use
  Company Number: US-KRAMERLABS-2019-US-003499

PATIENT
  Age: 38 Year
  Sex: Male
  Weight: 90.72 kg

DRUGS (1)
  1. NIZORAL A-D [Suspect]
     Active Substance: KETOCONAZOLE
     Indication: PRODUCT USED FOR UNKNOWN INDICATION
     Dosage: UNK
     Route: 061

REACTIONS (5)
  - Seborrhoea [Unknown]
  - Therapeutic response decreased [Unknown]
  - Dandruff [Unknown]
  - Erythema [Unknown]
  - Pruritus [Unknown]
